FAERS Safety Report 7889509-6 (Version None)
Quarter: 2011Q4

REPORT INFORMATION
  Report Type: 
  Country: None (occurrence: None)
  Receive Date: 20111103
  Receipt Date: 20111028
  Transmission Date: 20120403
  Serious: Yes (Other)
  Sender: FDA-Public Use
  Company Number: NL-CEPHALON-2011005586

PATIENT
  Sex: Female

DRUGS (8)
  1. DOMPERIDON [Concomitant]
  2. MODAFANIL [Suspect]
     Indication: NARCOLEPSY
     Route: 048
     Dates: start: 20110801
  3. MAGNESIUM HYDROXIDE [Concomitant]
  4. POLYETHYLENE GLYCOL [Concomitant]
  5. VENTOLIN [Concomitant]
  6. OMEPRAZOLE [Concomitant]
  7. METAMUCIL-2 [Concomitant]
  8. EBASTINE [Concomitant]

REACTIONS (5)
  - SKIN ODOUR ABNORMAL [None]
  - MUSCULAR DYSTROPHY [None]
  - WEIGHT DECREASED [None]
  - DECREASED APPETITE [None]
  - MUSCULAR WEAKNESS [None]
